FAERS Safety Report 5442039-3 (Version None)
Quarter: 2007Q3

REPORT INFORMATION
  Report Type: 
  Country: None (occurrence: None)
  Receive Date: 20070829
  Receipt Date: 20070824
  Transmission Date: 20080115
  Serious: Yes (Hospitalization)
  Sender: FDA-Public Use
  Company Number: 070108

PATIENT
  Age: 56 Year
  Sex: Female
  Weight: 78.4723 kg

DRUGS (3)
  1. HALFLYTELY [Suspect]
     Indication: COLONOSCOPY
     Dosage: 20 MG, 1X, PO
     Route: 048
     Dates: start: 20070813
  2. SYNTHROID [Concomitant]
  3. BLOOD PRESSURE MEDICATION [Concomitant]

REACTIONS (16)
  - ABDOMINAL PAIN [None]
  - ASTHENIA [None]
  - COLD SWEAT [None]
  - DISORIENTATION [None]
  - DIZZINESS [None]
  - HYPERHIDROSIS [None]
  - LOSS OF CONSCIOUSNESS [None]
  - MUSCLE SPASMS [None]
  - NAUSEA [None]
  - PAIN [None]
  - PALPITATIONS [None]
  - SHOCK [None]
  - STRESS [None]
  - VERTIGO [None]
  - VOMITING [None]
  - WHITE BLOOD CELL COUNT INCREASED [None]
